FAERS Safety Report 11800796 (Version 1)
Quarter: 2015Q4

REPORT INFORMATION
  Report Type: Spontaneous
  Country: DE (occurrence: DE)
  Receive Date: 20151204
  Receipt Date: 20151204
  Transmission Date: 20160305
  Serious: Yes (Congenital Anomaly, Other)
  Sender: FDA-Public Use
  Company Number: DE-ACCORD-035855

PATIENT
  Age: 1 Day
  Sex: Male
  Weight: 3.98 kg

DRUGS (3)
  1. BERODUAL [Concomitant]
     Active Substance: FENOTEROL HYDROBROMIDE\IPRATROPIUM BROMIDE
     Indication: ASTHMA
     Dosage: 0.1 MG/D  / 0.04 MG/D / ON DEMAND
     Route: 064
     Dates: start: 20140927, end: 20150717
  2. LEVETIRACETAM. [Suspect]
     Active Substance: LEVETIRACETAM
     Indication: EPILEPSY
     Dosage: DOSE: 1000 MG/DAY
     Route: 064
     Dates: start: 20140927, end: 20150717
  3. NOVOPULMON [Suspect]
     Active Substance: BUDESONIDE
     Indication: ASTHMA
     Dosage: DOSE : 0.8 MG/D, NOVOLIZER?STRENGTH: 200
     Route: 064
     Dates: start: 20140927, end: 20150717

REACTIONS (3)
  - Pancreatic cyst [Not Recovered/Not Resolved]
  - Foetal exposure during pregnancy [Unknown]
  - Congenital hydronephrosis [Not Recovered/Not Resolved]

NARRATIVE: CASE EVENT DATE: 20150717
